FAERS Safety Report 4418213-1 (Version None)
Quarter: 2004Q3

REPORT INFORMATION
  Report Type: 
  Country: None (occurrence: None)
  Receive Date: 20040809
  Receipt Date: 20030301
  Transmission Date: 20050211
  Serious: No
  Sender: FDA-Public Use
  Company Number: US-GLAXOSMITHKLINE-A0491726A

PATIENT
  Age: 31 Year
  Sex: Female

DRUGS (1)
  1. PAXIL [Suspect]
     Dosage: 12.5MG PER DAY
     Route: 048
     Dates: start: 20031001

REACTIONS (2)
  - DRUG EXPOSURE DURING PREGNANCY [None]
  - RASH MACULAR [None]
